FAERS Safety Report 10965986 (Version 1)
Quarter: 2015Q1

REPORT INFORMATION
  Report Type: Spontaneous
  Country: FI (occurrence: FI)
  Receive Date: 20150330
  Receipt Date: 20150330
  Transmission Date: 20150721
  Serious: Yes (Other)
  Sender: FDA-Public Use
  Company Number: FI-CELGENE-055-20785-14080311

PATIENT

DRUGS (6)
  1. CELECOXIB. [Concomitant]
     Active Substance: CELECOXIB
     Indication: GLIOMA
     Route: 048
  2. ETOPOSIDE. [Concomitant]
     Active Substance: ETOPOSIDE
     Indication: GLIOMA
     Route: 048
  3. ETOPOSIDE. [Concomitant]
     Active Substance: ETOPOSIDE
     Route: 041
  4. CELECOXIB. [Concomitant]
     Active Substance: CELECOXIB
     Route: 065
  5. THALIDOMIDE [Suspect]
     Active Substance: THALIDOMIDE
     Indication: OFF LABEL USE
  6. THALIDOMIDE [Suspect]
     Active Substance: THALIDOMIDE
     Indication: GLIOMA
     Route: 048

REACTIONS (17)
  - Anaemia [Unknown]
  - Shunt infection [Unknown]
  - Adverse reaction [Unknown]
  - Hepatic enzyme increased [Unknown]
  - Intracranial tumour haemorrhage [Unknown]
  - Thrombocytopenia [Unknown]
  - Sepsis [Unknown]
  - Depressed level of consciousness [Unknown]
  - Neutropenia [Unknown]
  - Pneumonia [Unknown]
  - Dysphagia [Unknown]
  - Febrile neutropenia [Unknown]
  - Glioma [Unknown]
  - Infection [Unknown]
  - Neuropathy peripheral [Unknown]
  - Hypertension [Unknown]
  - Dermatitis exfoliative [Unknown]
